FAERS Safety Report 7743868-3 (Version None)
Quarter: 2011Q3

REPORT INFORMATION
  Report Type: 
  Country: None (occurrence: None)
  Receive Date: 20110912
  Receipt Date: 20110615
  Transmission Date: 20111222
  Serious: Yes (Death, Hospitalization)
  Sender: FDA-Public Use
  Company Number: US-GLAXOSMITHKLINE-A0932486A

PATIENT
  Age: 19 Year
  Sex: Female
  Weight: 43 kg

DRUGS (1)
  1. FLOLAN [Suspect]
     Indication: COR PULMONALE CHRONIC
     Dosage: 107NGKM UNKNOWN
     Route: 065
     Dates: start: 20070313

REACTIONS (6)
  - COR PULMONALE [None]
  - PULMONARY ARTERIAL HYPERTENSION [None]
  - OEDEMA [None]
  - CHRONIC RESPIRATORY FAILURE [None]
  - DYSPNOEA [None]
  - ABDOMINAL PAIN [None]
